FAERS Safety Report 15438243 (Version 1)
Quarter: 2018Q3

REPORT INFORMATION
  Report Type: Spontaneous
  Country: CN (occurrence: CN)
  Receive Date: 20180928
  Receipt Date: 20180928
  Transmission Date: 20181010
  Serious: Yes (Death)
  Sender: FDA-Public Use
  Company Number: CN-009507513-1809CHN012228

PATIENT
  Sex: Female

DRUGS (1)
  1. KEYTRUDA [Suspect]
     Active Substance: PEMBROLIZUMAB
     Dosage: 100 MG TWICE
     Dates: start: 20180316, end: 20180406

REACTIONS (2)
  - Drug ineffective [Fatal]
  - Suspected counterfeit product [Unknown]

NARRATIVE: CASE EVENT DATE: 2018
